FAERS Safety Report 6474417-8 (Version None)
Quarter: 2009Q4

REPORT INFORMATION
  Report Type: 
  Country: None (occurrence: None)
  Receive Date: 20091204
  Receipt Date: 20091123
  Transmission Date: 20100525
  Serious: Yes (Other)
  Sender: FDA-Public Use
  Company Number: FR-ELI_LILLY_AND_COMPANY-FR200910004752

PATIENT
  Age: 73 Year
  Sex: Female
  Weight: 128 kg

DRUGS (6)
  1. BYETTA [Suspect]
     Indication: TYPE 2 DIABETES MELLITUS
     Dosage: 5 UG, 2/D
     Route: 058
     Dates: start: 20090101
  2. BYETTA [Suspect]
     Dosage: 10 UG, 2/D
     Route: 058
     Dates: start: 20091024
  3. METFORMIN HCL [Concomitant]
     Indication: TYPE 2 DIABETES MELLITUS
     Dosage: 850 G, 3/D
     Route: 048
  4. LANTUS [Concomitant]
     Indication: TYPE 2 DIABETES MELLITUS
     Dosage: 60 IU, DAILY (1/D)
     Route: 058
  5. TAHOR [Concomitant]
     Dosage: 80 MG, DAILY (1/D)
     Route: 048
  6. DIANTALVIC [Concomitant]
     Route: 048

REACTIONS (3)
  - IRON DEFICIENCY ANAEMIA [None]
  - OFF LABEL USE [None]
  - WEIGHT DECREASED [None]
